FAERS Safety Report 9116104 (Version 1)
Quarter: 2013Q1

REPORT INFORMATION
  Report Type: Spontaneous
  Country: US (occurrence: US)
  Receive Date: 20130225
  Receipt Date: 20130225
  Transmission Date: 20140127
  Serious: Yes (Other)
  Sender: FDA-Public Use
  Company Number: US-FRI-1000042641

PATIENT
  Age: 54 Year
  Sex: Female
  Weight: 72.5 kg

DRUGS (6)
  1. VIIBRYD [Suspect]
     Indication: ANXIETY
     Dosage: 10 MG
     Route: 048
     Dates: start: 20120919, end: 20120924
  2. METOPROLOL [Concomitant]
     Indication: HYPERTENSION
  3. TRIAMTERENE/HYDROCHLOROTHIAZIDE [Concomitant]
     Indication: HYPERTENSION
     Dates: start: 2008
  4. LEVOTHYROXINE [Concomitant]
     Indication: HYPOTHYROIDISM
  5. ADDERALL [Concomitant]
     Indication: ATTENTION DEFICIT/HYPERACTIVITY DISORDER
     Dates: start: 2010
  6. LORAZEPAM [Concomitant]
     Indication: ANXIETY
     Dates: start: 20120828

REACTIONS (7)
  - Anxiety [Recovered/Resolved]
  - Suicidal ideation [Recovered/Resolved]
  - Feeling of despair [Recovered/Resolved]
  - Impulse-control disorder [Recovered/Resolved]
  - Sensory disturbance [Recovered/Resolved]
  - Sensory disturbance [Recovered/Resolved]
  - Off label use [Recovered/Resolved]
